FAERS Safety Report 6471719-6 (Version None)
Quarter: 2009Q4

REPORT INFORMATION
  Report Type: 
  Country: None (occurrence: None)
  Receive Date: 20091203
  Receipt Date: 20080513
  Transmission Date: 20100525
  Serious: Yes (Hospitalization)
  Sender: FDA-Public Use
  Company Number: US-ELI_LILLY_AND_COMPANY-US200803000573

PATIENT
  Sex: Female
  Weight: 46.712 kg

DRUGS (14)
  1. FORTEO [Suspect]
     Indication: OSTEOPOROSIS
     Dosage: 20 UG, DAILY (1/D)
     Dates: start: 20071128
  2. FORTEO [Suspect]
     Dates: end: 20080101
  3. LACTULOSE [Concomitant]
  4. FLEXERIL [Concomitant]
  5. REQUIP [Concomitant]
  6. LORTAB [Concomitant]
  7. CLONAZEPAM [Concomitant]
  8. POTASSIUM [Concomitant]
  9. VITAMIN E /001105/ [Concomitant]
  10. KEPPRA [Concomitant]
  11. RELPAX [Concomitant]
  12. CALCIUM [Concomitant]
  13. NSAID'S [Concomitant]
  14. MOBIC [Concomitant]
     Indication: ARTHRITIS
     Dates: end: 20080201

REACTIONS (1)
  - GASTRIC ULCER HAEMORRHAGE [None]
